FAERS Safety Report 11799831 (Version 2)
Quarter: 2015Q4

REPORT INFORMATION
  Report Type: Report from Study
  Country: US (occurrence: US)
  Receive Date: 20151203
  Receipt Date: 20151231
  Transmission Date: 20160305
  Serious: Yes (Death, Hospitalization)
  Sender: FDA-Public Use
  Company Number: US-JNJFOC-20151201984

PATIENT
  Sex: Female

DRUGS (12)
  1. ARANESP [Concomitant]
     Active Substance: DARBEPOETIN ALFA
  2. TYLENOL [Concomitant]
     Active Substance: ACETAMINOPHEN
  3. ALDACTONE [Concomitant]
     Active Substance: SPIRONOLACTONE
  4. XANAX [Concomitant]
     Active Substance: ALPRAZOLAM
  5. NAMENDA [Concomitant]
     Active Substance: MEMANTINE HYDROCHLORIDE
  6. IMBRUVICA [Suspect]
     Active Substance: IBRUTINIB
     Indication: CHRONIC LYMPHOCYTIC LEUKAEMIA
     Route: 048
     Dates: start: 20150307
  7. PLAVIX [Concomitant]
     Active Substance: CLOPIDOGREL BISULFATE
  8. TOPROL XL [Concomitant]
     Active Substance: METOPROLOL SUCCINATE
  9. LASIX [Concomitant]
     Active Substance: FUROSEMIDE
  10. LIPITOR [Concomitant]
     Active Substance: ATORVASTATIN CALCIUM
  11. PEPCID [Concomitant]
     Active Substance: FAMOTIDINE
  12. ATORVASTATIN [Concomitant]
     Active Substance: ATORVASTATIN

REACTIONS (5)
  - Asthenia [Unknown]
  - Blood pressure fluctuation [Unknown]
  - Pericardial effusion [Unknown]
  - Death [Fatal]
  - Dyspnoea [Unknown]

NARRATIVE: CASE EVENT DATE: 2015
